FAERS Safety Report 23034226 (Version 1)
Quarter: 2023Q4

REPORT INFORMATION
  Report Type: Spontaneous
  Country: US (occurrence: None)
  Receive Date: 20231005
  Receipt Date: 20231005
  Transmission Date: 20240110
  Serious: No
  Sender: FDA-Public Use
  Company Number: None

PATIENT
  Sex: Female

DRUGS (1)
  1. ENBREL [Suspect]
     Active Substance: ETANERCEPT
     Dosage: OTHER FREQUENCY : OTHER;?
     Route: 058

REACTIONS (7)
  - Rash [None]
  - Rash [None]
  - Rash [None]
  - Nausea [None]
  - Therapy interrupted [None]
  - Rheumatoid arthritis [None]
  - Disease recurrence [None]
